FAERS Safety Report 18409897 (Version 1)
Quarter: 2020Q4

REPORT INFORMATION
  Report Type: Spontaneous
  Country: US (occurrence: US)
  Receive Date: 20201021
  Receipt Date: 20201021
  Transmission Date: 20210114
  Serious: No
  Sender: FDA-Public Use
  Company Number: None

PATIENT
  Sex: Female

DRUGS (1)
  1. OTEZLA [Suspect]
     Active Substance: APREMILAST
     Indication: PSORIASIS
     Route: 048
     Dates: start: 202007

REACTIONS (8)
  - Nausea [None]
  - Decreased interest [None]
  - Decreased appetite [None]
  - Breast pain [None]
  - Dyspepsia [None]
  - Mood altered [None]
  - Arthralgia [None]
  - Headache [None]
